FAERS Safety Report 21257760 (Version 1)
Quarter: 2022Q3

REPORT INFORMATION
  Report Type: Spontaneous
  Country: US (occurrence: None)
  Receive Date: 20220826
  Receipt Date: 20220826
  Transmission Date: 20221027
  Serious: No
  Sender: FDA-Public Use
  Company Number: 2022A276638

PATIENT
  Sex: Female
  Weight: 99.8 kg

DRUGS (1)
  1. FARXIGA [Suspect]
     Active Substance: DAPAGLIFLOZIN PROPANEDIOL
     Indication: Cardiac failure chronic
     Dosage: DAILY
     Route: 048
     Dates: start: 202201

REACTIONS (2)
  - Urine odour abnormal [Unknown]
  - Urine abnormality [Unknown]
